FAERS Safety Report 21792934 (Version 1)
Quarter: 2022Q4

REPORT INFORMATION
  Report Type: Spontaneous
  Country: JP (occurrence: JP)
  Receive Date: 20221229
  Receipt Date: 20221229
  Transmission Date: 20230113
  Serious: Yes (Other)
  Sender: FDA-Public Use
  Company Number: JP-ALKEM LABORATORIES LIMITED-JP-ALKEM-2022-11662

PATIENT
  Age: 10 Month
  Sex: Female

DRUGS (1)
  1. SIROLIMUS [Suspect]
     Active Substance: SIROLIMUS
     Indication: Lymphatic disorder
     Dosage: UNK; QD
     Route: 048

REACTIONS (1)
  - Cellulitis [Unknown]
